FAERS Safety Report 4844419-3 (Version None)
Quarter: 2005Q4

REPORT INFORMATION
  Report Type: 
  Country: None (occurrence: None)
  Receive Date: 20051202
  Receipt Date: 20051005
  Transmission Date: 20060501
  Serious: Yes (Disabling)
  Sender: FDA-Public Use
  Company Number: US-MERCK-0510USA04268

PATIENT
  Age: 47 Year
  Sex: Male
  Weight: 93 kg

DRUGS (2)
  1. VIOXX [Suspect]
     Indication: BACK PAIN
     Route: 048
     Dates: start: 19990601
  2. VIOXX [Suspect]
     Route: 065
     Dates: start: 19991201

REACTIONS (5)
  - ANGIOPATHY [None]
  - BACK DISORDER [None]
  - CARDIOVASCULAR DISORDER [None]
  - CARPAL TUNNEL SYNDROME [None]
  - MYOCARDIAL INFARCTION [None]
